FAERS Safety Report 10782385 (Version 1)
Quarter: 2015Q1

REPORT INFORMATION
  Report Type: Spontaneous
  Country: US (occurrence: US)
  Receive Date: 20150210
  Receipt Date: 20150210
  Transmission Date: 20150721
  Serious: No
  Sender: FDA-Public Use
  Company Number: US-GLAXOSMITHKLINE-A1089727A

PATIENT

DRUGS (1)
  1. LAMICTAL XR [Suspect]
     Active Substance: LAMOTRIGINE
     Indication: EPILEPSY
     Dosage: 200 MG AT 400 MG TOTAL DAILY DOSE;DECREASED TO 300 MG
     Dates: start: 2011

REACTIONS (2)
  - Dizziness [Unknown]
  - Flushing [Unknown]
